FAERS Safety Report 4655078-7 (Version None)
Quarter: 2005Q2

REPORT INFORMATION
  Report Type: 
  Country: None (occurrence: None)
  Receive Date: 20050503
  Receipt Date: 20050418
  Transmission Date: 20051028
  Serious: Yes (Death)
  Sender: FDA-Public Use
  Company Number: 2005SE01757

PATIENT
  Age: 48 Year
  Sex: Female

DRUGS (9)
  1. SEROQUEL [Suspect]
     Indication: PSYCHOTIC DISORDER
     Dosage: 800  MG DAILY PO
     Route: 048
     Dates: start: 20040401
  2. SEROQUEL [Suspect]
     Indication: PSYCHOTIC DISORDER
     Dosage: 12 G ONCE PO
     Route: 048
     Dates: start: 20050223
  3. CITALOPRAM [Suspect]
     Indication: DEPRESSION
     Dosage: 60 MG DAILY PO
     Route: 048
  4. CITALOPRAM [Suspect]
     Indication: DEPRESSION
     Dates: start: 20050223
  5. OXAZEPAM [Suspect]
     Indication: ANXIETY
     Dosage: 15 MG TID PO
     Route: 048
     Dates: start: 20050223
  6. OXAZEPAM [Suspect]
     Indication: ANXIETY
  7. NIMADORM ZOLPIDEM [Concomitant]
  8. OXAPAX [Concomitant]
  9. KLOPOXID [Concomitant]

REACTIONS (3)
  - COMPLETED SUICIDE [None]
  - INTENTIONAL MISUSE [None]
  - MULTIPLE DRUG OVERDOSE [None]
